FAERS Safety Report 14632275 (Version 2)
Quarter: 2019Q1

REPORT INFORMATION
  Report Type: Spontaneous
  Country: US (occurrence: US)
  Receive Date: 20180313
  Receipt Date: 20190311
  Transmission Date: 20190417
  Serious: No
  Sender: FDA-Public Use
  Company Number: US-ALLERGAN-1807981US

PATIENT
  Age: 64 Year
  Sex: Female

DRUGS (2)
  1. OXYTROL [Suspect]
     Active Substance: OXYBUTYNIN
     Indication: HYPERTONIC BLADDER
     Dosage: FOUR DAY PATCH
     Route: 062
  2. OXYTROL [Suspect]
     Active Substance: OXYBUTYNIN
     Indication: POLLAKIURIA

REACTIONS (3)
  - Skin irritation [Recovered/Resolved]
  - Product dose omission [Unknown]
  - Drug ineffective [Unknown]
